FAERS Safety Report 4792642-9 (Version None)
Quarter: 2005Q4

REPORT INFORMATION
  Report Type: 
  Country: None (occurrence: None)
  Receive Date: 20051010
  Receipt Date: 20051006
  Transmission Date: 20060501
  Serious: Yes (Death, Other)
  Sender: FDA-Public Use
  Company Number: JP-SANOFI-SYNTHELABO-F01200502077

PATIENT
  Age: 78 Year
  Sex: Female
  Weight: 42 kg

DRUGS (3)
  1. OXALIPLATIN [Suspect]
     Indication: COLON CANCER
     Dosage: 100MG/BODY=78.1MG/M2 IN INFUSION ON DAY 1
     Route: 042
     Dates: start: 20050530, end: 20050530
  2. FLUOROURACIL [Suspect]
     Dosage: 400MG/BODY=312.5MG/M2 IN BOLUS THEN 1200MG/BODY=937.5MG/M2 AS CONTINUOUS INFUSION ON DAYS 1 AND 2
     Route: 042
     Dates: start: 20050530, end: 20050531
  3. CALCIUM LEVOFOLINATE [Suspect]
     Dosage: 100MG/BODY=78.1MG/M2 AS INFUSION ON DAYS 1 AND 2
     Route: 042
     Dates: start: 20050530, end: 20050531

REACTIONS (3)
  - ASCITES [None]
  - ASPARTATE AMINOTRANSFERASE INCREASED [None]
  - HEPATIC FUNCTION ABNORMAL [None]
